FAERS Safety Report 20920862 (Version 5)
Quarter: 2022Q3

REPORT INFORMATION
  Report Type: Report from Study
  Country: JP (occurrence: JP)
  Receive Date: 20220606
  Receipt Date: 20220825
  Transmission Date: 20221027
  Serious: Yes (Hospitalization, Other)
  Sender: FDA-Public Use
  Company Number: JP-ONO-2021JP020840

PATIENT
  Age: 79 Year
  Sex: Male
  Weight: 45.5 kg

DRUGS (26)
  1. ETELCALCETIDE [Suspect]
     Active Substance: ETELCALCETIDE
     Indication: Hyperparathyroidism secondary
     Dosage: 5 MILLIGRAM, Q56H
     Route: 010
     Dates: start: 20200713, end: 20210416
  2. ETELCALCETIDE [Suspect]
     Active Substance: ETELCALCETIDE
     Dosage: 5 MILLIGRAM, QWK
     Route: 010
     Dates: start: 20210524, end: 20210816
  3. ETELCALCETIDE [Suspect]
     Active Substance: ETELCALCETIDE
     Dosage: 5 MILLIGRAM, Q84H
     Route: 010
     Dates: start: 20210823
  4. MAXACALCITOL [Suspect]
     Active Substance: MAXACALCITOL
     Indication: Product used for unknown indication
     Dosage: 5 MICROGRAM, Q84H
     Route: 065
     Dates: end: 20200110
  5. MAXACALCITOL [Suspect]
     Active Substance: MAXACALCITOL
     Dosage: 5 MICROGRAM, Q56H
     Route: 065
     Dates: start: 20200113, end: 20200203
  6. MAXACALCITOL [Suspect]
     Active Substance: MAXACALCITOL
     Dosage: 5 MICROGRAM, Q84H
     Route: 065
     Dates: start: 20200309, end: 20200504
  7. MAXACALCITOL [Suspect]
     Active Substance: MAXACALCITOL
     Dosage: 5 MICROGRAM, QWK
     Route: 042
     Dates: start: 20200511, end: 20210416
  8. MAXACALCITOL [Suspect]
     Active Substance: MAXACALCITOL
     Dosage: 5 MICROGRAM, Q56H
     Route: 042
     Dates: start: 20210419, end: 20210618
  9. MAXACALCITOL [Suspect]
     Active Substance: MAXACALCITOL
     Dosage: 5 MICROGRAM, Q84H
     Route: 042
     Dates: start: 20210621, end: 20210709
  10. MAXACALCITOL [Suspect]
     Active Substance: MAXACALCITOL
     Dosage: 5 MICROGRAM, QWK
     Route: 042
     Dates: start: 20210913, end: 20220425
  11. MAXACALCITOL [Suspect]
     Active Substance: MAXACALCITOL
     Dosage: 5 MICROGRAM, QWK
     Route: 042
     Dates: start: 20220509
  12. DARBEPOETIN ALFA [Concomitant]
     Active Substance: DARBEPOETIN ALFA
     Indication: Nephrogenic anaemia
     Dosage: 20 MICROGRAM, QWK
     Route: 065
     Dates: start: 20210215, end: 20210726
  13. DARBEPOETIN ALFA [Concomitant]
     Active Substance: DARBEPOETIN ALFA
     Dosage: 15 MICROGRAM, QWK
     Route: 065
     Dates: start: 20210802, end: 20210830
  14. DARBEPOETIN ALFA [Concomitant]
     Active Substance: DARBEPOETIN ALFA
     Dosage: 5 MICROGRAM, QWK
     Route: 065
     Dates: start: 20210906, end: 20220425
  15. DARBEPOETIN ALFA [Concomitant]
     Active Substance: DARBEPOETIN ALFA
     Dosage: 5 MICROGRAM, QWK
     Route: 065
     Dates: start: 20220509
  16. LANTHANUM CARBONATE [Concomitant]
     Active Substance: LANTHANUM CARBONATE
     Dosage: 500 MILLIGRAM, QD
     Route: 048
     Dates: end: 20210323
  17. CALTAN [Concomitant]
     Active Substance: CALCIUM CARBONATE
     Indication: Hyperphosphataemia
     Dosage: 500 MILLIGRAM, Q8H
     Route: 048
     Dates: start: 20200217
  18. IRON SUCROSE [Concomitant]
     Active Substance: IRON SUCROSE
     Dosage: 40 MILLIGRAM, QD
     Route: 042
     Dates: start: 20200713, end: 20200807
  19. IRON SUCROSE [Concomitant]
     Active Substance: IRON SUCROSE
     Dosage: 40 MILLIGRAM, QD
     Route: 042
     Dates: start: 20210208, end: 20210305
  20. IRON SUCROSE [Concomitant]
     Active Substance: IRON SUCROSE
     Dosage: 40 MILLIGRAM, QD
     Route: 042
     Dates: start: 20210614, end: 20210709
  21. IRON SUCROSE [Concomitant]
     Active Substance: IRON SUCROSE
     Dosage: 40 MILLIGRAM, QD
     Route: 042
     Dates: start: 20220214, end: 20220311
  22. FERRIC HYDROXIDE [Concomitant]
     Active Substance: FERRIC HYDROXIDE
     Indication: Hyperphosphataemia
     Dosage: 250 MILLIGRAM, Q12H
     Route: 048
     Dates: start: 20210324
  23. URSODIOL [Concomitant]
     Active Substance: URSODIOL
     Indication: Cholelithiasis
     Dosage: 100 MILLIGRAM, Q8H
     Route: 048
  24. ASPIRIN [Concomitant]
     Active Substance: ASPIRIN
     Indication: Carotid artery stenosis
     Dosage: 100 MILLIGRAM, QD
     Route: 048
     Dates: end: 20220608
  25. LEVOCARNITINE [Concomitant]
     Active Substance: LEVOCARNITINE
     Indication: Carnitine deficiency
     Dosage: 1000 MILLIGRAM, QWK
     Route: 042
     Dates: end: 20220425
  26. LEVOCARNITINE [Concomitant]
     Active Substance: LEVOCARNITINE
     Dosage: 1000 MILLIGRAM, QWK
     Dates: start: 20220509

REACTIONS (6)
  - Glaucoma [Recovered/Resolved]
  - Exfoliation glaucoma [Recovered/Resolved]
  - Device dislocation [Recovering/Resolving]
  - Hypocalcaemia [Recovered/Resolved]
  - Blood calcium increased [Recovered/Resolved]
  - Iron deficiency anaemia [Recovered/Resolved]

NARRATIVE: CASE EVENT DATE: 20210419
